FAERS Safety Report 5839611-5 (Version None)
Quarter: 2008Q3

REPORT INFORMATION
  Report Type: 
  Country: None (occurrence: None)
  Receive Date: 20080811
  Receipt Date: 20080801
  Transmission Date: 20090109
  Serious: Yes (Other)
  Sender: FDA-Public Use
  Company Number: HQWYE697005APR05

PATIENT
  Sex: Female

DRUGS (4)
  1. PREMPRO [Suspect]
     Indication: MENOPAUSAL SYMPTOMS
  2. PROVERA [Suspect]
     Indication: MENOPAUSAL SYMPTOMS
  3. ACTIVELLA [Suspect]
     Indication: MENOPAUSAL SYMPTOMS
  4. PREMARIN [Suspect]
     Indication: MENOPAUSAL SYMPTOMS

REACTIONS (1)
  - BREAST CANCER METASTATIC [None]
